FAERS Safety Report 8986299 (Version 1)
Quarter: 2012Q4

REPORT INFORMATION
  Report Type: 
  Country: US (occurrence: US)
  Receive Date: 20121226
  Receipt Date: 20121226
  Transmission Date: 20130627
  Serious: Yes (Other)
  Sender: FDA-Public Use
  Company Number: US-ELI_LILLY_AND_COMPANY-US201212006474

PATIENT
  Sex: Male

DRUGS (1)
  1. ALIMTA [Suspect]
     Dosage: UNK
     Route: 065

REACTIONS (4)
  - Infusion related reaction [Unknown]
  - Chest discomfort [Unknown]
  - Malaise [Unknown]
  - Flushing [Unknown]
